FAERS Safety Report 13978463 (Version 1)
Quarter: 2017Q3

REPORT INFORMATION
  Report Type: Spontaneous
  Country: US (occurrence: US)
  Receive Date: 20170915
  Receipt Date: 20170915
  Transmission Date: 20171128
  Serious: No
  Sender: FDA-Public Use
  Company Number: US-009507513-1709USA004356

PATIENT
  Sex: Male

DRUGS (2)
  1. BRIDION [Suspect]
     Active Substance: SUGAMMADEX
     Indication: NEUROMUSCULAR BLOCKADE REVERSAL
     Dosage: 2 MG/KG ADMINISTRATION
     Route: 065
  2. BRIDION [Suspect]
     Active Substance: SUGAMMADEX
     Dosage: ANOTHER 2 MG/KG ADMINISTRATION
     Route: 065

REACTIONS (2)
  - Muscle twitching [Unknown]
  - Drug effect incomplete [Unknown]
